FAERS Safety Report 11906740 (Version 1)
Quarter: 2016Q1

REPORT INFORMATION
  Report Type: Spontaneous
  Country: None (occurrence: US)
  Receive Date: 20160111
  Receipt Date: 20160111
  Transmission Date: 20160526
  Serious: No
  Sender: FDA-Public Use
  Company Number: US-MEDAC PHARMA, INC.-1046327

PATIENT
  Age: 76 Year
  Sex: Female
  Weight: 69.09 kg

DRUGS (10)
  1. BIOTIN [Concomitant]
     Active Substance: BIOTIN
  2. FOLIC ACID. [Concomitant]
     Active Substance: FOLIC ACID
  3. CEPHALEXIN. [Concomitant]
     Active Substance: CEPHALEXIN
  4. MULTI-VITAMIN [Concomitant]
     Active Substance: .ALPHA.-TOCOPHEROL ACETATE, DL-\ASCORBIC ACID\CYANOCOBALAMIN\FLUORIDE ION\FOLIC ACID\NIACIN\PYRIDOXINE\RIBOFLAVIN\THIAMINE\VITAMIN A\VITAMIN D
  5. FOSAMAX [Concomitant]
     Active Substance: ALENDRONATE SODIUM
  6. PREDNISONE. [Concomitant]
     Active Substance: PREDNISONE
  7. CYANOCOBALAMIN. [Concomitant]
     Active Substance: CYANOCOBALAMIN
  8. RASUVO [Suspect]
     Active Substance: METHOTREXATE SODIUM
     Indication: RHEUMATOID ARTHRITIS
     Dates: start: 201511
  9. ARMOUR THYROID [Concomitant]
     Active Substance: THYROID, PORCINE
  10. ESTER-C [Concomitant]
     Active Substance: CALCIUM\VITAMINS

REACTIONS (2)
  - Vertigo [Not Recovered/Not Resolved]
  - Middle ear effusion [Unknown]

NARRATIVE: CASE EVENT DATE: 2015
